FAERS Safety Report 17173111 (Version 1)
Quarter: 2019Q4

REPORT INFORMATION
  Report Type: Spontaneous
  Country: US (occurrence: US)
  Receive Date: 20191126
  Receipt Date: 20191126
  Transmission Date: 20200122
  Serious: Yes (Hospitalization)
  Sender: FDA-Public Use
  Company Number: None

PATIENT
  Age: 63 Year
  Sex: Female

DRUGS (12)
  1. ASPIRIN. [Concomitant]
     Active Substance: ASPIRIN
  2. AZITHROMYCIN ANHYDROUS. [Concomitant]
     Active Substance: AZITHROMYCIN ANHYDROUS
  3. MGANESIUM OXIDE [Concomitant]
  4. ADALIMUMAB [Concomitant]
     Active Substance: ADALIMUMAB
  5. LEVOTHROXINE [Concomitant]
     Active Substance: LEVOTHYROXINE
  6. FLUTICASONE. [Concomitant]
     Active Substance: FLUTICASONE
  7. OCULAR LUBRICANT (REFRESH) [Concomitant]
  8. CHOLECALCIFEROL [Concomitant]
     Active Substance: CHOLECALCIFEROL
  9. OMEGA -3 FATTY ACIDS [Concomitant]
  10. LORATADINE. [Concomitant]
     Active Substance: LORATADINE
  11. HUMIRA [Suspect]
     Active Substance: ADALIMUMAB
     Indication: PSORIASIS
     Dosage: ?          OTHER STRENGTH:40MG/0.4ML;QUANTITY:2 DF DOSAGE FORM;?
     Route: 058
  12. SIMVASTATIN. [Concomitant]
     Active Substance: SIMVASTATIN

REACTIONS (3)
  - Transient ischaemic attack [None]
  - Facial paralysis [None]
  - Hypoaesthesia [None]

NARRATIVE: CASE EVENT DATE: 20191107
